FAERS Safety Report 8454899-2 (Version None)
Quarter: 2012Q2

REPORT INFORMATION
  Report Type: 
  Country: None (occurrence: None)
  Receive Date: 20120615
  Receipt Date: 20120615
  Transmission Date: 20120825
  Serious: Yes (Other)
  Sender: FDA-Public Use
  Company Number: None

PATIENT
  Sex: Female
  Weight: 55.3388 kg

DRUGS (1)
  1. BOTOX [Suspect]
     Dosage: 9 UNITS ONCE INJECTION IN FOREHEAD
     Dates: start: 20111127

REACTIONS (26)
  - LOCAL SWELLING [None]
  - DIZZINESS [None]
  - HEADACHE [None]
  - SPEECH DISORDER [None]
  - LIP SWELLING [None]
  - GINGIVAL SWELLING [None]
  - EYELID SKIN DRYNESS [None]
  - FLUSHING [None]
  - PHARYNGEAL OEDEMA [None]
  - OEDEMA MOUTH [None]
  - DRY EYE [None]
  - EYELID OEDEMA [None]
  - COMPULSIVE LIP BITING [None]
  - INSOMNIA [None]
  - VISION BLURRED [None]
  - CHEST PAIN [None]
  - OEDEMA PERIPHERAL [None]
  - EPISTAXIS [None]
  - DRY MOUTH [None]
  - TONGUE BITING [None]
  - SWELLING FACE [None]
  - MYALGIA [None]
  - BALANCE DISORDER [None]
  - CHROMATURIA [None]
  - MUSCULAR WEAKNESS [None]
  - ANXIETY [None]
